FAERS Safety Report 12192834 (Version 2)
Quarter: 2017Q1

REPORT INFORMATION
  Report Type: Report from Study
  Country: US (occurrence: US)
  Receive Date: 20160318
  Receipt Date: 20170203
  Transmission Date: 20170428
  Serious: Yes (Death, Hospitalization)
  Sender: FDA-Public Use
  Company Number: US-ACTELION-A-NJ2016-133058

PATIENT
  Age: 20 Month
  Sex: Female
  Weight: 12.7 kg

DRUGS (2)
  1. SILDENAFIL. [Concomitant]
     Active Substance: SILDENAFIL
  2. TRACLEER [Suspect]
     Active Substance: BOSENTAN
     Indication: PULMONARY ARTERIAL HYPERTENSION
     Dosage: 15.625 MG DISSOLVED IN 5 ML AND ADMINISTERED 2 ML
     Route: 048

REACTIONS (5)
  - Death [Fatal]
  - Middle ear effusion [Unknown]
  - Gastrointestinal infection [Unknown]
  - Ear tube insertion [Unknown]
  - Tenotomy [Unknown]

NARRATIVE: CASE EVENT DATE: 20161227
